FAERS Safety Report 5636045-3 (Version None)
Quarter: 2008Q1

REPORT INFORMATION
  Report Type: 
  Country: None (occurrence: None)
  Receive Date: 20080220
  Receipt Date: 20080220
  Transmission Date: 20080703
  Serious: Yes (Hospitalization)
  Sender: FDA-Public Use
  Company Number: None

PATIENT
  Age: 45 Year
  Sex: Female
  Weight: 57.1532 kg

DRUGS (1)
  1. CHANTIX [Suspect]
     Indication: SMOKING CESSATION THERAPY
     Dates: start: 20070505, end: 20070601

REACTIONS (11)
  - AGGRESSION [None]
  - ANGER [None]
  - CONVULSION [None]
  - DEPRESSION [None]
  - HOT FLUSH [None]
  - MENSTRUATION IRREGULAR [None]
  - NAUSEA [None]
  - PERSONALITY CHANGE [None]
  - SLEEP DISORDER [None]
  - THYROID FUNCTION TEST ABNORMAL [None]
  - VICTIM OF CRIME [None]
